FAERS Safety Report 9684935 (Version 3)
Quarter: 2014Q4

REPORT INFORMATION
  Report Type: Report from Study
  Country: BR (occurrence: BR)
  Receive Date: 20131113
  Receipt Date: 20141224
  Transmission Date: 20150529
  Serious: Yes (Hospitalization)
  Sender: FDA-Public Use
  Company Number: BR-BIOGENIDEC-2013BI108646

PATIENT
  Age: 66 Year
  Sex: Female
  Weight: 60 kg

DRUGS (7)
  1. VYTORIN [Concomitant]
     Active Substance: EZETIMIBE\SIMVASTATIN
     Indication: BLOOD CHOLESTEROL INCREASED
  2. DEPURA [Concomitant]
     Active Substance: CHOLECALCIFEROL
  3. TYSABRI [Suspect]
     Active Substance: NATALIZUMAB
     Indication: MULTIPLE SCLEROSIS
     Route: 042
     Dates: start: 20110913
  4. LEXOTAN [Concomitant]
     Active Substance: BROMAZEPAM
     Indication: INSOMNIA
  5. INDAPEN [Concomitant]
     Active Substance: INDAPAMIDE
     Indication: HYPERTENSION
  6. VENLAFAXINE [Concomitant]
     Active Substance: VENLAFAXINE HYDROCHLORIDE
     Indication: DEPRESSION
  7. FITOCOR (NOS) [Concomitant]
     Indication: BLOOD CHOLESTEROL

REACTIONS (14)
  - Hyperaesthesia [Unknown]
  - Balance disorder [Unknown]
  - Urinary tract infection [Not Recovered/Not Resolved]
  - Hypertension [Recovered/Resolved]
  - Prescribed underdose [Unknown]
  - Gait disturbance [Unknown]
  - Tinnitus [Unknown]
  - Spinal pain [Unknown]
  - Spinal deformity [Recovered/Resolved]
  - Pain in extremity [Unknown]
  - Traumatic haematoma [Not Recovered/Not Resolved]
  - Fall [Recovered/Resolved]
  - Asthenia [Unknown]
  - Dizziness [Unknown]

NARRATIVE: CASE EVENT DATE: 2013
